FAERS Safety Report 8514357-3 (Version None)
Quarter: 2012Q3

REPORT INFORMATION
  Report Type: 
  Country: None (occurrence: None)
  Receive Date: 20120717
  Receipt Date: 20120712
  Transmission Date: 20120928
  Serious: Yes (Hospitalization)
  Sender: FDA-Public Use
  Company Number: US-JNJFOC-20120707005

PATIENT
  Sex: Female
  Weight: 143.9 kg

DRUGS (3)
  1. REMICADE [Suspect]
     Indication: PSORIASIS
     Route: 042
     Dates: start: 20071001, end: 20120101
  2. METHOTREXATE [Concomitant]
  3. TACLONEX [Concomitant]

REACTIONS (2)
  - THROMBOSIS [None]
  - CELLULITIS [None]
